FAERS Safety Report 25266533 (Version 1)
Quarter: 2025Q2

REPORT INFORMATION
  Report Type: Spontaneous
  Country: US (occurrence: US)
  Receive Date: 20250505
  Receipt Date: 20250505
  Transmission Date: 20250717
  Serious: No
  Sender: NOVARTIS
  Company Number: US-002147023-NVSC2025US071549

PATIENT
  Sex: Male

DRUGS (2)
  1. TAFINLAR [Suspect]
     Active Substance: DABRAFENIB MESYLATE
     Indication: Thyroid cancer
     Dosage: 150 MG, BID (FEEDING TUBE)
     Route: 050
     Dates: start: 202410
  2. MEKINIST [Suspect]
     Active Substance: TRAMETINIB DIMETHYL SULFOXIDE
     Dosage: 40 ML, QD (FEEDING TUBE)
     Route: 050
     Dates: start: 202410

REACTIONS (3)
  - Constipation [Unknown]
  - Fatigue [Unknown]
  - Discomfort [Unknown]
